FAERS Safety Report 6415113-2 (Version None)
Quarter: 2009Q4

REPORT INFORMATION
  Report Type: 
  Country: None (occurrence: None)
  Receive Date: 20091027
  Receipt Date: 20091016
  Transmission Date: 20100525
  Serious: Yes (Hospitalization)
  Sender: FDA-Public Use
  Company Number: US-BIOGENIDEC-2009BI015012

PATIENT
  Age: 51 Year
  Sex: Female

DRUGS (1)
  1. TYSABRI [Suspect]
     Indication: MULTIPLE SCLEROSIS
     Route: 042
     Dates: start: 20080424

REACTIONS (5)
  - DECUBITUS ULCER [None]
  - INCONTINENCE [None]
  - NEPHROLITHIASIS [None]
  - PAIN [None]
  - RENAL HAEMORRHAGE [None]
